FAERS Safety Report 6226029-9 (Version None)
Quarter: 2009Q2

REPORT INFORMATION
  Report Type: 
  Country: None (occurrence: None)
  Receive Date: 20090612
  Receipt Date: 20090506
  Transmission Date: 20091009
  Serious: No
  Sender: FDA-Public Use
  Company Number: US-ABBOTT-09P-163-0571938-00

PATIENT
  Sex: Female
  Weight: 94.432 kg

DRUGS (3)
  1. HUMIRA [Suspect]
     Indication: PSORIASIS
     Dates: start: 20090319, end: 20090326
  2. HUMIRA [Suspect]
     Dates: start: 20090326, end: 20090326
  3. HUMIRA [Suspect]
     Dates: start: 20090409

REACTIONS (3)
  - DYSGEUSIA [None]
  - DYSPEPSIA [None]
  - INJECTION SITE PAIN [None]
